FAERS Safety Report 11797410 (Version 1)
Quarter: 2015Q4

REPORT INFORMATION
  Report Type: Report from Study
  Country: US (occurrence: US)
  Receive Date: 20151203
  Receipt Date: 20151203
  Transmission Date: 20160305
  Serious: Yes (Hospitalization, Other)
  Sender: FDA-Public Use
  Company Number: US-BAXTER-2015BAX063941

PATIENT
  Age: 70 Year
  Sex: Male

DRUGS (27)
  1. METHOTREXATE [Suspect]
     Active Substance: METHOTREXATE
     Indication: ACUTE LYMPHOCYTIC LEUKAEMIA
     Dosage: CYCLE 1 DAY 1
     Route: 037
     Dates: start: 20141205
  2. ALBUTEROL W/IPRATROPIUM [Concomitant]
     Active Substance: ALBUTEROL\IPRATROPIUM
     Indication: DYSPNOEA
     Dosage: 3 CUBIC CM INHALATION VIA RESPIRATORY INHALATION
     Route: 055
  3. SPIRONOLACTONE. [Concomitant]
     Active Substance: SPIRONOLACTONE
     Indication: PRODUCT USED FOR UNKNOWN INDICATION
     Route: 048
  4. RITUXIMAB [Suspect]
     Active Substance: RITUXIMAB
     Indication: ACUTE LYMPHOCYTIC LEUKAEMIA
     Dosage: CYCLE 1 ON DAYS 2 AND 8
     Route: 042
     Dates: start: 20141206
  5. RITUXIMAB [Suspect]
     Active Substance: RITUXIMAB
     Dosage: CYCLE 2 ON DAYS 2 AND 7
     Route: 042
     Dates: end: 20150112
  6. LEXAPRO [Concomitant]
     Active Substance: ESCITALOPRAM OXALATE
     Indication: PRODUCT USED FOR UNKNOWN INDICATION
     Route: 048
  7. CYCLOPHOSPHAMIDE FOR INJECTION, USP [Suspect]
     Active Substance: CYCLOPHOSPHAMIDE
     Indication: ACUTE LYMPHOCYTIC LEUKAEMIA
     Dosage: ON DAYS 1-4, CYCLE 1
     Route: 042
     Dates: start: 20141205, end: 20150126
  8. VINCRISTINE [Suspect]
     Active Substance: VINCRISTINE
     Dosage: CYCLE 1
     Route: 042
     Dates: end: 20150126
  9. METHOTREXATE [Suspect]
     Active Substance: METHOTREXATE
     Dosage: CYCLE 2 DAY 1, OVER 22 HRS
     Route: 042
     Dates: start: 20150106, end: 20150108
  10. INSULIN BOVINE [Concomitant]
     Indication: PRODUCT USED FOR UNKNOWN INDICATION
     Dosage: 100 UNITS PER CUBIC CENTIMETERS
     Route: 058
  11. MESNA FOR INJECTION 1 GRAM [Suspect]
     Active Substance: MESNA
     Indication: ACUTE LYMPHOCYTIC LEUKAEMIA
     Dosage: CONTINOUS INFUSION DAYS 1-3, CYCLE 1
     Route: 042
     Dates: start: 20141205, end: 20150126
  12. CYTARABIN [Suspect]
     Active Substance: CYTARABINE
     Dosage: CYCLE 2 DAY 21
     Route: 037
     Dates: end: 20150126
  13. LASIX [Concomitant]
     Active Substance: FUROSEMIDE
     Indication: PRODUCT USED FOR UNKNOWN INDICATION
     Dosage: HALF OF 40 MG TABLET
     Route: 048
  14. CYTARABIN [Suspect]
     Active Substance: CYTARABINE
     Indication: ACUTE LYMPHOCYTIC LEUKAEMIA
     Dosage: CYCLE 1 DAY 7
     Route: 037
  15. VINCRISTINE [Suspect]
     Active Substance: VINCRISTINE
     Indication: ACUTE LYMPHOCYTIC LEUKAEMIA
     Dosage: ON DAY 1, CYCLE 1
     Route: 042
     Dates: start: 20141205
  16. INOTUZUMAB OZOGAMICIN [Suspect]
     Active Substance: INOTUZUMAB OZOGAMICIN
     Dosage: CYCLE 2 ON DAY 3
     Route: 042
  17. CYTARABIN [Suspect]
     Active Substance: CYTARABINE
     Dosage: CYCLE 2, DAY 2 AND 3
     Route: 042
     Dates: start: 20150107, end: 20150110
  18. ASPIRINE [Concomitant]
     Active Substance: ASPIRIN
     Indication: PRODUCT USED FOR UNKNOWN INDICATION
     Route: 048
  19. LANTUS [Concomitant]
     Active Substance: INSULIN GLARGINE
     Indication: PRODUCT USED FOR UNKNOWN INDICATION
     Route: 058
  20. POTASSIUM CHLORIDE. [Concomitant]
     Active Substance: POTASSIUM CHLORIDE
     Indication: PRODUCT USED FOR UNKNOWN INDICATION
     Dosage: 15 CC
     Route: 048
  21. FLOMAX [Concomitant]
     Active Substance: TAMSULOSIN HYDROCHLORIDE
     Indication: PRODUCT USED FOR UNKNOWN INDICATION
     Route: 065
  22. INOTUZUMAB OZOGAMICIN [Suspect]
     Active Substance: INOTUZUMAB OZOGAMICIN
     Indication: ACUTE LYMPHOCYTIC LEUKAEMIA
     Dosage: CYCLE 1 DAY 3
     Route: 042
     Dates: start: 20141207, end: 20141207
  23. INOTUZUMAB OZOGAMICIN [Suspect]
     Active Substance: INOTUZUMAB OZOGAMICIN
     Dosage: CYCLE 2  DOSE REDUCED
     Route: 042
     Dates: end: 20150109
  24. METHOTREXATE [Suspect]
     Active Substance: METHOTREXATE
     Dosage: CYCLE 2 DAY 2
     Route: 037
     Dates: start: 20150107, end: 20150107
  25. METHOTREXATE [Suspect]
     Active Substance: METHOTREXATE
     Dosage: CYCLE 2 DAY 1, OVER 2 HRS
     Route: 042
     Dates: start: 20150106, end: 20150107
  26. METHYLPREDNISOLONE SODIUM SUCCINATE. [Suspect]
     Active Substance: METHYLPREDNISOLONE SODIUM SUCCINATE
     Indication: ACUTE LYMPHOCYTIC LEUKAEMIA
     Dosage: CYCLW 2, ON DAYS 1-3
     Route: 042
     Dates: start: 20150106, end: 20150109
  27. PROTONIX [Concomitant]
     Active Substance: PANTOPRAZOLE SODIUM
     Indication: PRODUCT USED FOR UNKNOWN INDICATION
     Route: 048

REACTIONS (1)
  - Venoocclusive liver disease [Unknown]
